FAERS Safety Report 7017652-2 (Version None)
Quarter: 2010Q3

REPORT INFORMATION
  Report Type: 
  Country: None (occurrence: None)
  Receive Date: 20100928
  Receipt Date: 20100916
  Transmission Date: 20110219
  Serious: Yes (Hospitalization, Other)
  Sender: FDA-Public Use
  Company Number: US-PFIZER INC-2010117773

PATIENT
  Sex: Female
  Weight: 61.678 kg

DRUGS (13)
  1. ZYVOX [Suspect]
     Indication: STAPHYLOCOCCAL INFECTION
     Dosage: UNK
     Dates: start: 20100801, end: 20100101
  2. VANCOMYCIN [Suspect]
     Indication: STAPHYLOCOCCAL INFECTION
     Dosage: UNK
  3. ZOSYN [Suspect]
     Dosage: UNK
  4. BACTRIM [Suspect]
     Indication: STAPHYLOCOCCAL INFECTION
     Dosage: UNK
     Dates: end: 20100101
  5. LORTAB [Concomitant]
     Indication: PAIN
     Dosage: 5/500 MG
     Route: 048
  6. DURAGESIC-100 [Concomitant]
     Indication: PAIN
     Dosage: 37.5 MG, 1X/DAY
     Route: 062
  7. COREG [Concomitant]
     Indication: CARDIAC OPERATION
     Dosage: 6.5 MG, 2X/DAY
     Route: 048
  8. WARFARIN [Concomitant]
     Indication: ANTICOAGULANT THERAPY
     Dosage: UNK
     Route: 048
  9. SPIRIVA [Concomitant]
     Indication: CHRONIC OBSTRUCTIVE PULMONARY DISEASE
     Dosage: UNK
  10. SYMBICORT [Concomitant]
     Indication: ASTHMA
     Dosage: UNK
  11. PROZAC [Concomitant]
     Indication: DEPRESSION
     Dosage: 60 MG, 1X/DAY
     Route: 048
  12. KLONOPIN [Concomitant]
     Indication: DEPRESSION
     Dosage: 1 MG, 2X/DAY
     Route: 048
  13. SEROQUEL [Concomitant]
     Indication: CONVULSION
     Dosage: 50 MG, 1X/DAY
     Route: 048

REACTIONS (7)
  - ABASIA [None]
  - ABSCESS LIMB [None]
  - BEDRIDDEN [None]
  - DIARRHOEA [None]
  - HYPOAESTHESIA [None]
  - PROCTALGIA [None]
  - WEIGHT DECREASED [None]
